FAERS Safety Report 26019448 (Version 1)
Quarter: 2025Q4

REPORT INFORMATION
  Report Type: Spontaneous
  Country: US (occurrence: US)
  Receive Date: 20251110
  Receipt Date: 20251110
  Transmission Date: 20260117
  Serious: No
  Sender: BRISTOL-MYERS SQUIBB COMPANY
  Company Number: US-BRISTOL-MYERS SQUIBB COMPANY-2025-151801

PATIENT
  Age: 89 Year
  Sex: Female

DRUGS (2)
  1. POMALYST [Suspect]
     Active Substance: POMALIDOMIDE
     Indication: Plasma cell myeloma
     Route: 048
     Dates: start: 20240108
  2. POMALYST [Suspect]
     Active Substance: POMALIDOMIDE
     Route: 048

REACTIONS (1)
  - Confusional state [Unknown]

NARRATIVE: CASE EVENT DATE: 20251010
